FAERS Safety Report 14475951 (Version 1)
Quarter: 2018Q1

REPORT INFORMATION
  Report Type: Spontaneous
  Country: FR (occurrence: FR)
  Receive Date: 20180201
  Receipt Date: 20180201
  Transmission Date: 20180509
  Serious: Yes (Death, Other)
  Sender: FDA-Public Use
  Company Number: FR-PFIZER INC-2018040374

PATIENT
  Age: 65 Year
  Sex: Female
  Weight: 48.8 kg

DRUGS (3)
  1. INEXIUM /01479302/ [Concomitant]
     Active Substance: ESOMEPRAZOLE MAGNESIUM
     Dosage: 1 DF, 1X/DAY
     Route: 048
  2. GEMCITABINE HYDROCHLORIDE. [Suspect]
     Active Substance: GEMCITABINE HYDROCHLORIDE
     Indication: BREAST CANCER
     Dosage: 1 DF, WEEKLY
     Route: 042
     Dates: start: 20170719
  3. DUROGESIC [Concomitant]
     Active Substance: FENTANYL
     Dosage: 1 PG, UNK
     Route: 062

REACTIONS (3)
  - Bone marrow failure [Fatal]
  - Septic shock [Fatal]
  - Neoplasm progression [Fatal]

NARRATIVE: CASE EVENT DATE: 20170811
